FAERS Safety Report 6143391-6 (Version None)
Quarter: 2009Q2

REPORT INFORMATION
  Report Type: 
  Country: None (occurrence: None)
  Receive Date: 20090403
  Receipt Date: 20090324
  Transmission Date: 20091009
  Serious: Yes (Other)
  Sender: FDA-Public Use
  Company Number: CA-PFIZER INC-2009165660

PATIENT

DRUGS (1)
  1. ZELDOX [Suspect]
     Route: 048

REACTIONS (3)
  - AGITATION [None]
  - TARDIVE DYSKINESIA [None]
  - WEIGHT DECREASED [None]
